FAERS Safety Report 24415770 (Version 1)
Quarter: 2024Q4

REPORT INFORMATION
  Report Type: Spontaneous
  Country: TW (occurrence: TW)
  Receive Date: 20241009
  Receipt Date: 20241009
  Transmission Date: 20250114
  Serious: Yes (Hospitalization)
  Sender: RANBAXY
  Company Number: TW-SUN PHARMACEUTICAL INDUSTRIES LTD-2024R1-471787

PATIENT
  Age: 34 Year
  Sex: Female

DRUGS (8)
  1. LEUPROLIDE [Suspect]
     Active Substance: LEUPROLIDE
     Indication: Coagulopathy
     Dosage: UNK
     Route: 065
  2. LEUPROLIDE [Suspect]
     Active Substance: LEUPROLIDE
     Indication: Uterine haemorrhage
  3. TRANEXAMIC ACID [Suspect]
     Active Substance: TRANEXAMIC ACID
     Indication: Coagulopathy
     Dosage: UNK
     Route: 065
  4. TRANEXAMIC ACID [Suspect]
     Active Substance: TRANEXAMIC ACID
     Indication: Uterine haemorrhage
  5. WARFARIN [Suspect]
     Active Substance: WARFARIN
     Indication: Coagulopathy
     Dosage: UNK
     Route: 065
  6. WARFARIN [Suspect]
     Active Substance: WARFARIN
     Indication: Uterine haemorrhage
  7. ERGONOVINE MALEATE [Suspect]
     Active Substance: ERGONOVINE MALEATE
     Indication: Uterine haemorrhage
     Dosage: UNK
     Route: 065
  8. ERGONOVINE MALEATE [Suspect]
     Active Substance: ERGONOVINE MALEATE
     Indication: Coagulopathy

REACTIONS (1)
  - Disease recurrence [Unknown]
